FAERS Safety Report 25213324 (Version 1)
Quarter: 2025Q2

REPORT INFORMATION
  Report Type: Spontaneous
  Country: US (occurrence: US)
  Receive Date: 20250418
  Receipt Date: 20250418
  Transmission Date: 20250717
  Serious: Yes (Other)
  Sender: PFIZER
  Company Number: US-PFIZER INC-PV202500043069

PATIENT

DRUGS (1)
  1. NURTEC ODT [Suspect]
     Active Substance: RIMEGEPANT SULFATE
     Indication: Migraine
     Dates: start: 202209

REACTIONS (7)
  - Suicidal ideation [Recovering/Resolving]
  - Anxiety [Recovering/Resolving]
  - Fear [Recovering/Resolving]
  - Paranoia [Recovering/Resolving]
  - Insomnia [Recovering/Resolving]
  - Eating disorder [Recovering/Resolving]
  - Disturbance in attention [Recovering/Resolving]

NARRATIVE: CASE EVENT DATE: 20220101
